FAERS Safety Report 4685632-8 (Version None)
Quarter: 2005Q2

REPORT INFORMATION
  Report Type: 
  Country: None (occurrence: None)
  Receive Date: 20050608
  Receipt Date: 20050523
  Transmission Date: 20051028
  Serious: Yes (Hospitalization)
  Sender: FDA-Public Use
  Company Number: US-MERCK-0505USA02709

PATIENT
  Age: 67 Year
  Sex: Female

DRUGS (8)
  1. COZAAR [Suspect]
     Route: 048
  2. AMARYL [Concomitant]
     Route: 065
  3. METFORMIN [Concomitant]
     Route: 065
  4. PLAVIX [Concomitant]
     Route: 065
  5. EVISTA [Concomitant]
     Route: 065
  6. BUPROPION HYDROCHLORIDE [Concomitant]
     Route: 065
  7. SYNTHROID [Concomitant]
     Route: 065
  8. [THERAPY UNSPECIFIED] [Concomitant]
     Route: 065

REACTIONS (3)
  - BLISTER [None]
  - STAPHYLOCOCCAL INFECTION [None]
  - SUPERINFECTION [None]
